FAERS Safety Report 24799025 (Version 2)
Quarter: 2025Q2

REPORT INFORMATION
  Report Type: Spontaneous
  Country: US (occurrence: US)
  Receive Date: 20250102
  Receipt Date: 20250414
  Transmission Date: 20250717
  Serious: No
  Sender: SANOFI AVENTIS
  Company Number: US-SA-2024SA385353

PATIENT
  Age: 6 Year
  Sex: Male

DRUGS (1)
  1. DUPIXENT [Suspect]
     Active Substance: DUPILUMAB
     Indication: Dermatitis atopic
     Dosage: 300 MG, Q4W
     Route: 058

REACTIONS (9)
  - Dry skin [Unknown]
  - Skin exfoliation [Unknown]
  - Skin haemorrhage [Recovered/Resolved]
  - Skin weeping [Recovered/Resolved]
  - Skin fissures [Recovered/Resolved]
  - Sleep disorder due to a general medical condition [Recovered/Resolved]
  - Pruritus [Recovered/Resolved]
  - Arthralgia [Unknown]
  - Incorrect dose administered [Unknown]

NARRATIVE: CASE EVENT DATE: 20250401
